FAERS Safety Report 9795698 (Version 3)
Quarter: 2014Q1

REPORT INFORMATION
  Report Type: Report from Study
  Country: BE (occurrence: BE)
  Receive Date: 20140103
  Receipt Date: 20140109
  Transmission Date: 20141002
  Serious: Yes (Death, Hospitalization)
  Sender: FDA-Public Use
  Company Number: BE-009507513-1312BEL001490

PATIENT
  Age: 54 Year
  Sex: Male
  Weight: 93 kg

DRUGS (5)
  1. CASPOFUNGIN ACETATE [Suspect]
     Dosage: UNK, QD
     Route: 042
     Dates: end: 20131115
  2. BLOOD CELLS, RED [Concomitant]
     Indication: ANAEMIA
     Dosage: UNK
     Route: 042
     Dates: start: 20131110, end: 20131129
  3. PLATELET CONCENTRATE [Concomitant]
     Indication: THROMBOCYTOPENIA
     Dosage: UNK
     Route: 042
     Dates: start: 20131110, end: 20131129
  4. BLOOD, PLASMA [Concomitant]
     Indication: HAEMORRHAGIC DIATHESIS
     Dosage: UNK
     Route: 042
     Dates: start: 20131110, end: 20131129
  5. CYTOXAN [Concomitant]
     Indication: ACUTE MYELOID LEUKAEMIA
     Dosage: 450MG (J1-J2)
     Route: 042
     Dates: start: 20131110, end: 20131116

REACTIONS (3)
  - Multi-organ failure [Fatal]
  - Septic shock [Fatal]
  - Disseminated intravascular coagulation [Fatal]
